APPROVED DRUG PRODUCT: PREDNISOLONE ACETATE
Active Ingredient: PREDNISOLONE ACETATE
Strength: 1%
Dosage Form/Route: SUSPENSION/DROPS;OPHTHALMIC
Application: A216935 | Product #001 | TE Code: AB
Applicant: LUPIN LTD
Approved: Aug 2, 2024 | RLD: No | RS: No | Type: RX